FAERS Safety Report 7359893-0 (Version None)
Quarter: 2011Q1

REPORT INFORMATION
  Report Type: 
  Country: None (occurrence: None)
  Receive Date: 20110317
  Receipt Date: 20110307
  Transmission Date: 20110831
  Serious: Yes (Disabling, Other)
  Sender: FDA-Public Use
  Company Number: DE-AMGEN-DEUSP2011003823

PATIENT
  Age: 84 Year
  Sex: Female
  Weight: 68 kg

DRUGS (9)
  1. PROLIA [Suspect]
     Indication: PRODUCT USED FOR UNKNOWN INDICATION
     Dosage: 60 MG, ONE TIME DOSE
     Route: 058
     Dates: start: 20101209, end: 20101209
  2. ENBREL [Suspect]
     Indication: RHEUMATOID ARTHRITIS
     Dosage: UNK
     Dates: start: 20100101
  3. IBUPROFEN [Concomitant]
     Dosage: 800 UNK, QD
  4. PANTOPRAZOL                        /01263202/ [Concomitant]
     Dosage: 40 MG, QD
     Route: 048
  5. ERYPO                              /00928301/ [Concomitant]
     Dosage: 10 MG, QWK
     Route: 058
  6. PREDNISOLONE [Concomitant]
     Dosage: 5 MG, UNK
  7. LANTAREL [Concomitant]
     Dosage: 10 MG, QWK
  8. FOLSAN [Concomitant]
     Dosage: 5 MG, QWK
  9. CALCIUM VERLA [Concomitant]
     Dosage: 5 MG, QWK

REACTIONS (5)
  - VERTIGO [None]
  - VOMITING [None]
  - BLOOD PRESSURE ABNORMAL [None]
  - WALKING DISABILITY [None]
  - NAUSEA [None]
